FAERS Safety Report 21466060 (Version 1)
Quarter: 2022Q4

REPORT INFORMATION
  Report Type: Spontaneous
  Country: US (occurrence: US)
  Receive Date: 20221017
  Receipt Date: 20221017
  Transmission Date: 20230113
  Serious: No
  Sender: FDA-Public Use
  Company Number: US-ABBVIE-4156743

PATIENT

DRUGS (1)
  1. PANCRELIPASE [Suspect]
     Active Substance: PANCRELIPASE
     Indication: Product used for unknown indication
     Route: 048

REACTIONS (5)
  - Oral mucosal blistering [Unknown]
  - Impaired healing [Unknown]
  - Flatulence [Unknown]
  - Tachypnoea [Unknown]
  - Skin abrasion [Unknown]
